FAERS Safety Report 6038033-4 (Version None)
Quarter: 2009Q1

REPORT INFORMATION
  Report Type: 
  Country: None (occurrence: None)
  Receive Date: 20090114
  Receipt Date: 20090114
  Transmission Date: 20090719
  Serious: No
  Sender: FDA-Public Use
  Company Number: None

PATIENT
  Sex: Male
  Weight: 127.0072 kg

DRUGS (1)
  1. ALLOPURINOL 100MG TAB [Suspect]
     Indication: NEPHROLITHIASIS
     Dosage: 100 MG TABLET 1 DAILY BY MOUTH
     Route: 048
     Dates: start: 20080923

REACTIONS (7)
  - HYPERSENSITIVITY [None]
  - OEDEMA PERIPHERAL [None]
  - OROPHARYNGEAL PAIN [None]
  - PRURITUS [None]
  - PYREXIA [None]
  - RASH [None]
  - VISUAL IMPAIRMENT [None]
